FAERS Safety Report 9601305 (Version 2)
Quarter: 2013Q4

REPORT INFORMATION
  Report Type: Spontaneous
  Country: AU (occurrence: AU)
  Receive Date: 20131006
  Receipt Date: 20131120
  Transmission Date: 20140711
  Serious: Yes (Other)
  Sender: FDA-Public Use
  Company Number: AU-ABBVIE-13P-008-1154470-00

PATIENT
  Age: 63 Year
  Sex: Female
  Weight: 101 kg

DRUGS (16)
  1. LIPIDIL [Suspect]
     Indication: PRODUCT USED FOR UNKNOWN INDICATION
     Dates: start: 20130423, end: 20130923
  2. MIRTAZAPINE [Concomitant]
     Indication: DEPRESSION
  3. AMLODIPINE [Concomitant]
     Indication: HYPERTENSION
     Route: 048
  4. ASPIRIN [Concomitant]
     Indication: PROPHYLAXIS
     Route: 048
  5. COVERSYL [Concomitant]
     Indication: HYPERTENSION
     Route: 048
     Dates: start: 20131105
  6. CRESTOR [Concomitant]
     Indication: HYPERCHOLESTEROLAEMIA
     Route: 048
  7. GAVISCON- P LIQUID [Concomitant]
     Indication: GASTROOESOPHAGEAL REFLUX DISEASE
     Dosage: 20-30ML THREE TIMES DAILY WHEN REQUIRED
     Route: 048
  8. ISOSORBIDE MONONITRATE [Concomitant]
     Indication: ANGINA PECTORIS
     Route: 048
  9. MAXOLON [Concomitant]
     Indication: GASTROOESOPHAGEAL REFLUX DISEASE
     Route: 048
  10. METOPROLOL TARTRATE [Concomitant]
     Indication: HYPERTENSION
     Route: 048
  11. MOTILIUM [Concomitant]
     Indication: GASTROOESOPHAGEAL REFLUX DISEASE
     Dosage: 1 TABLET THREE TIMES DAILY WHEN REQUIRED
  12. MURELAX [Concomitant]
     Indication: ANXIETY
     Route: 048
  13. PARACETAMOL [Concomitant]
     Indication: PAIN
     Dosage: 1-2 TABLETS FOUR TIMES A DAY WHEN REQUIRED
     Route: 048
  14. RABEPRAZOLE [Concomitant]
     Indication: GASTROOESOPHAGEAL REFLUX DISEASE
     Route: 048
  15. FLUTICASONE PROPIONATE W/SALMETEROL [Concomitant]
     Indication: ASTHMA
  16. VENTOLIN [Concomitant]
     Indication: ASTHMA
     Dosage: 2-4 PUFFS EVERY 4 HOURS WHEN REQUIRED

REACTIONS (16)
  - Blood bicarbonate decreased [Unknown]
  - Blood potassium increased [Unknown]
  - Blood urea increased [Unknown]
  - Glomerular filtration rate decreased [Recovered/Resolved]
  - Gamma-glutamyltransferase increased [Unknown]
  - Aspartate aminotransferase increased [Unknown]
  - Blood uric acid increased [Unknown]
  - Haemoglobin decreased [Recovered/Resolved]
  - Blood creatinine increased [Recovered/Resolved]
  - Hepatic enzyme increased [Not Recovered/Not Resolved]
  - Eczema [Unknown]
  - Dermatitis contact [Unknown]
  - Dermatitis atopic [Unknown]
  - Eczema nummular [Unknown]
  - Adverse drug reaction [Unknown]
  - Urinary tract infection [Unknown]
